FAERS Safety Report 12071452 (Version 1)
Quarter: 2016Q1

REPORT INFORMATION
  Report Type: Not Available
  Country: US (occurrence: US)
  Receive Date: 20160211
  Receipt Date: 20160211
  Transmission Date: 20160526
  Serious: No
  Sender: FDA-Public Use
  Company Number: US-ANIPHARMA-2015-US-001138

PATIENT
  Age: 51 Year
  Sex: Female
  Weight: 55.79 kg

DRUGS (1)
  1. REGLAN [Suspect]
     Active Substance: METOCLOPRAMIDE HYDROCHLORIDE
     Dosage: 2 TABS
     Route: 048
     Dates: start: 20150501, end: 20150501

REACTIONS (3)
  - Fatigue [Unknown]
  - Dizziness [Unknown]
  - Muscle twitching [Unknown]
